FAERS Safety Report 6001184-4 (Version None)
Quarter: 2008Q4

REPORT INFORMATION
  Report Type: 
  Country: None (occurrence: None)
  Receive Date: 20081215
  Receipt Date: 20081201
  Transmission Date: 20090506
  Serious: Yes (Hospitalization)
  Sender: FDA-Public Use
  Company Number: US-ELI_LILLY_AND_COMPANY-US200812000573

PATIENT
  Sex: Female
  Weight: 147.85 kg

DRUGS (1)
  1. ZYPREXA [Suspect]
     Dates: start: 19960101, end: 20030101

REACTIONS (4)
  - CARDIAC FAILURE CONGESTIVE [None]
  - DIABETES MELLITUS [None]
  - HYPERTENSION [None]
  - RENAL FAILURE [None]
